FAERS Safety Report 24582785 (Version 1)
Quarter: 2024Q4

REPORT INFORMATION
  Report Type: Spontaneous
  Country: US (occurrence: US)
  Receive Date: 20241106
  Receipt Date: 20241106
  Transmission Date: 20250114
  Serious: Yes (Death, Life-Threatening, Hospitalization, Other)
  Sender: BRISTOL-MYERS SQUIBB COMPANY
  Company Number: US-BRISTOL-MYERS SQUIBB COMPANY-2024-173233

PATIENT
  Sex: Male

DRUGS (3)
  1. ADAGRASIB [Suspect]
     Active Substance: ADAGRASIB
     Indication: Renal cell carcinoma
     Dates: start: 202403
  2. ADAGRASIB [Suspect]
     Active Substance: ADAGRASIB
     Dates: start: 20240626
  3. CETUXIMAB [Suspect]
     Active Substance: CETUXIMAB
     Indication: Renal cell carcinoma
     Dates: start: 202403

REACTIONS (2)
  - Acute respiratory distress syndrome [Fatal]
  - Interstitial lung disease [Fatal]

NARRATIVE: CASE EVENT DATE: 20240715
